FAERS Safety Report 24768956 (Version 2)
Quarter: 2024Q4

REPORT INFORMATION
  Report Type: Spontaneous
  Country: US (occurrence: US)
  Receive Date: 20241224
  Receipt Date: 20241230
  Transmission Date: 20250114
  Serious: Yes (Hospitalization)
  Sender: UCB
  Company Number: US-UCBSA-2024066750

PATIENT
  Sex: Male

DRUGS (1)
  1. ZILBRYSQ [Interacting]
     Active Substance: ZILUCOPLAN
     Indication: Product used for unknown indication
     Dosage: UNK
     Dates: end: 20241217

REACTIONS (5)
  - Hypoaesthesia [Not Recovered/Not Resolved]
  - Eyelid ptosis [Not Recovered/Not Resolved]
  - Asthenia [Not Recovered/Not Resolved]
  - Adverse drug reaction [Unknown]
  - Drug interaction [Unknown]

NARRATIVE: CASE EVENT DATE: 20241217
